FAERS Safety Report 23718613 (Version 1)
Quarter: 2024Q2

REPORT INFORMATION
  Report Type: Spontaneous
  Country: FR (occurrence: FR)
  Receive Date: 20240408
  Receipt Date: 20240408
  Transmission Date: 20240716
  Serious: Yes (Hospitalization)
  Sender: FDA-Public Use
  Company Number: None

PATIENT
  Age: 15 Year
  Sex: Male
  Weight: 62 kg

DRUGS (9)
  1. METHOTREXATE [Suspect]
     Active Substance: METHOTREXATE
     Indication: T-cell type acute leukaemia
     Dosage: TIME INTERVAL: 1 TOTAL: METHOTREXATE TEVA 10 PER CENT (5 G/50 ML
     Route: 065
     Dates: start: 20230725, end: 20230725
  2. METHOTREXATE [Suspect]
     Active Substance: METHOTREXATE
     Indication: T-cell type acute leukaemia
     Dosage: TIME INTERVAL: 1 TOTAL: METHOTREXATE TEVA 10 PER CENT (5 G/50 ML
     Route: 065
     Dates: start: 20231026, end: 20231026
  3. METHOTREXATE [Suspect]
     Active Substance: METHOTREXATE
     Indication: T-cell type acute leukaemia
     Dosage: TIME INTERVAL: 1 TOTAL: METHOTREXATE TEVA 10 PER CENT (5 G/50 ML
     Route: 065
     Dates: start: 20230808, end: 20230808
  4. METHOTREXATE [Suspect]
     Active Substance: METHOTREXATE
     Indication: T-cell type acute leukaemia
     Dosage: TIME INTERVAL: 1 TOTAL: METHOTREXATE TEVA 10 PER CENT (5 G/50 ML
     Route: 065
     Dates: start: 20230801, end: 20230801
  5. DASATINIB [Suspect]
     Active Substance: DASATINIB
     Indication: T-cell type acute leukaemia
     Dosage: TIME INTERVAL: 1 TOTAL
     Route: 065
     Dates: end: 20231102
  6. PURINETHOL [Concomitant]
     Active Substance: MERCAPTOPURINE
     Indication: T-cell type acute leukaemia
     Dosage: SCORED TABLET
     Route: 065
  7. ONCASPAR [Suspect]
     Active Substance: PEGASPARGASE
     Indication: T-cell type acute leukaemia
     Dosage: TIME INTERVAL: 1 TOTAL
     Route: 042
     Dates: start: 20231019, end: 20231019
  8. ONCASPAR [Suspect]
     Active Substance: PEGASPARGASE
     Indication: T-cell type acute leukaemia
     Dosage: TIME INTERVAL: 1 TOTAL: 750UI/ML SOL INJ
     Route: 042
     Dates: start: 20230728, end: 20230728
  9. ONDANSETRON [Concomitant]
     Active Substance: ONDANSETRON
     Indication: Prophylaxis of nausea and vomiting
     Dosage: 1 TABLET EVERY 12 HOURS IF NAUSEA,
     Route: 065

REACTIONS (4)
  - Drug interaction [Recovered/Resolved]
  - Acute kidney injury [Recovered/Resolved]
  - Overdose [Recovered/Resolved]
  - Incorrect disposal of product [Recovered/Resolved]

NARRATIVE: CASE EVENT DATE: 20231028
